FAERS Safety Report 5902010-1 (Version None)
Quarter: 2008Q3

REPORT INFORMATION
  Report Type: 
  Country: None (occurrence: None)
  Receive Date: 20080929
  Receipt Date: 20080918
  Transmission Date: 20090109
  Serious: Yes (Life-Threatening, Hospitalization)
  Sender: FDA-Public Use
  Company Number: CO-AMGEN-US309966

PATIENT
  Sex: Male

DRUGS (1)
  1. ENBREL [Suspect]
     Indication: ANKYLOSING SPONDYLITIS
     Route: 058
     Dates: start: 20071201, end: 20080701

REACTIONS (3)
  - HISTOPLASMOSIS [None]
  - MUCOUS MEMBRANE DISORDER [None]
  - SINUSITIS [None]
